FAERS Safety Report 9131423 (Version 1)
Quarter: 2013Q1

REPORT INFORMATION
  Report Type: Report from Study
  Country: US (occurrence: US)
  Receive Date: 20130301
  Receipt Date: 20130301
  Transmission Date: 20140127
  Serious: No
  Sender: FDA-Public Use
  Company Number: US-MYLANLABS-2012S1004406

PATIENT
  Age: 26 Year
  Sex: Male

DRUGS (1)
  1. AMNESTEEM CAPSULES [Suspect]
     Indication: ACNE
     Route: 048
     Dates: start: 20111025, end: 20120224

REACTIONS (2)
  - Blood triglycerides increased [Recovered/Resolved]
  - Aspartate aminotransferase increased [Recovered/Resolved]
